FAERS Safety Report 9965730 (Version 1)
Quarter: 2014Q1

REPORT INFORMATION
  Report Type: Report from Study
  Country: US (occurrence: US)
  Receive Date: 20140305
  Receipt Date: 20140305
  Transmission Date: 20141002
  Serious: Yes (Death, Hospitalization)
  Sender: FDA-Public Use
  Company Number: US-ABBVIE-13P-163-1124544-00

PATIENT
  Age: 43 Year
  Sex: Male

DRUGS (6)
  1. HUMIRA [Suspect]
     Indication: CROHN^S DISEASE
     Route: 058
  2. PREDNISONE [Concomitant]
     Indication: CROHN^S DISEASE
  3. AZAFAN [Concomitant]
     Indication: CROHN^S DISEASE
  4. PENTASA [Concomitant]
     Indication: CROHN^S DISEASE
  5. TRAMADOL [Concomitant]
     Indication: RASH
     Dates: start: 20130701
  6. TRAMADOL [Concomitant]
     Indication: PAIN OF SKIN

REACTIONS (4)
  - Pneumonia legionella [Fatal]
  - Dyspnoea [Recovered/Resolved]
  - Rash [Unknown]
  - Pain of skin [Unknown]
